FAERS Safety Report 7738473-9 (Version None)
Quarter: 2011Q3

REPORT INFORMATION
  Report Type: 
  Country: None (occurrence: None)
  Receive Date: 20110908
  Receipt Date: 20110831
  Transmission Date: 20111222
  Serious: Yes (Death, Hospitalization, Other)
  Sender: FDA-Public Use
  Company Number: US-CELGENEUS-163-21880-11040983

PATIENT
  Sex: Male

DRUGS (8)
  1. LACTULOSE [Concomitant]
     Dosage: 30 MILLILITER
     Route: 065
  2. RED BLOOD CELLS [Concomitant]
     Route: 041
  3. REVLIMID [Suspect]
     Indication: MULTIPLE MYELOMA
     Dosage: 10 MILLIGRAM
     Route: 048
     Dates: start: 20101025, end: 20110404
  4. PREDNISONE [Concomitant]
     Route: 065
     Dates: end: 20110412
  5. VITAMIN B-12 [Concomitant]
     Indication: VITAMIN B12 DEFICIENCY
     Route: 050
  6. ROCEPHIN [Concomitant]
     Dosage: 2 GRAM
     Route: 041
  7. ZOMETA [Concomitant]
     Route: 065
  8. LEVOTHYROXINE SODIUM [Concomitant]
     Dosage: .15 MILLIGRAM
     Route: 065

REACTIONS (9)
  - RENAL FAILURE ACUTE [None]
  - CONFUSIONAL STATE [None]
  - PLATELET COUNT DECREASED [None]
  - DEHYDRATION [None]
  - DRUG INEFFECTIVE [None]
  - DEATH [None]
  - GASTROINTESTINAL HAEMORRHAGE [None]
  - FEBRILE NEUTROPENIA [None]
  - ALPHA HAEMOLYTIC STREPTOCOCCAL INFECTION [None]
